FAERS Safety Report 12711885 (Version 2)
Quarter: 2018Q2

REPORT INFORMATION
  Report Type: Spontaneous
  Country: BR (occurrence: BR)
  Receive Date: 20160902
  Receipt Date: 20180611
  Transmission Date: 20180711
  Serious: Yes (Hospitalization, Other)
  Sender: FDA-Public Use
  Company Number: BR-AMGEN-BRASP2016113785

PATIENT
  Age: 33 Year
  Sex: Male
  Weight: 29 kg

DRUGS (7)
  1. RANITIDINE. [Concomitant]
     Active Substance: RANITIDINE
     Indication: OESOPHAGEAL STENOSIS
     Dosage: 150 MG, BID (MORNING AND EVENING)
  2. GRANULOKINE [Suspect]
     Active Substance: FILGRASTIM
     Indication: NEUTROPENIA
     Dosage: UNK, QOD (15 BOTTLES PER MONTH, 1 BOTTLE ON ALTERNATE DAYS)
     Route: 065
  3. GRANULOKINE [Suspect]
     Active Substance: FILGRASTIM
     Dosage: UNK, QOD (15 BOTTLES PER MONTH, 1 BOTTLE ON ALTERNATE DAYS)
     Route: 065
     Dates: end: 20180531
  4. ALLOPURINOL. [Concomitant]
     Active Substance: ALLOPURINOL
     Indication: BLOOD URIC ACID INCREASED
     Dosage: 100 MG TWO TABLETS PER DAY
  5. PROTOVIT [Concomitant]
     Indication: MEDICAL DIET
     Dosage: 1 TABLET DAILY
  6. FILGRASTIM [Suspect]
     Active Substance: FILGRASTIM
     Indication: NEUTROPENIA
     Dosage: UNK
     Route: 065
     Dates: start: 2016
  7. GRANULOKINE [Suspect]
     Active Substance: FILGRASTIM
     Dosage: UNK, QOD (15 BOTTLES PER MONTH, 1 BOTTLE ON ALTERNATE DAYS)
     Route: 065
     Dates: end: 201607

REACTIONS (15)
  - Infection [Unknown]
  - Cough [Recovered/Resolved]
  - Pneumonia [Recovered/Resolved]
  - Pneumonia aspiration [Recovered/Resolved]
  - Hypoglycaemia [Unknown]
  - Off label use [Unknown]
  - Balance disorder [Unknown]
  - Renal impairment [Unknown]
  - Nephrolithiasis [Recovering/Resolving]
  - Chest pain [Unknown]
  - Nausea [Unknown]
  - Procedural haemorrhage [Unknown]
  - Stomatitis [Unknown]
  - Pain [Unknown]
  - Vomiting [Unknown]

NARRATIVE: CASE EVENT DATE: 2016
